FAERS Safety Report 10008093 (Version 1)
Quarter: 2014Q1

REPORT INFORMATION
  Report Type: Spontaneous
  Country: CL (occurrence: CL)
  Receive Date: 20140313
  Receipt Date: 20140313
  Transmission Date: 20141002
  Serious: Yes (Other)
  Sender: FDA-Public Use
  Company Number: CL-PFIZER INC-2014069766

PATIENT
  Sex: Female

DRUGS (2)
  1. XALATAN [Suspect]
     Dosage: UNK
     Route: 047
     Dates: start: 2006
  2. VACIDOX [Concomitant]

REACTIONS (2)
  - Arrhythmia [Not Recovered/Not Resolved]
  - Hearing impaired [Not Recovered/Not Resolved]
